FAERS Safety Report 8659637 (Version 2)
Quarter: 2012Q4

REPORT INFORMATION
  Report Type: 
  Country: US (occurrence: US)
  Receive Date: 20120711
  Receipt Date: 20121031
  Transmission Date: 20130627
  Serious: No
  Sender: FDA-Public Use
  Company Number: US-ELI_LILLY_AND_COMPANY-US201207001020

PATIENT
  Age: 67 Year
  Sex: Female

DRUGS (6)
  1. CYMBALTA [Suspect]
     Indication: DEPRESSION
     Dosage: 30 mg, qd
     Dates: start: 201202
  2. CYMBALTA [Suspect]
     Dosage: 60 mg, qd
  3. CYMBALTA [Suspect]
     Dosage: 60 mg, each evening
  4. LEVOTHYROXINE [Concomitant]
  5. AMLODIPINE BESILATE [Concomitant]
  6. TYLENOL                                 /SCH/ [Concomitant]

REACTIONS (4)
  - Intentional drug misuse [Recovered/Resolved]
  - Drug withdrawal syndrome [Recovered/Resolved]
  - Feeling abnormal [Recovered/Resolved]
  - Feeling abnormal [Unknown]
